FAERS Safety Report 9772392 (Version 2)
Quarter: 2013Q4

REPORT INFORMATION
  Report Type: Spontaneous
  Country: US (occurrence: None)
  Receive Date: 20131217
  Receipt Date: 20131227
  Transmission Date: 20140711
  Serious: Yes (Other)
  Sender: FDA-Public Use
  Company Number: 7255674

PATIENT
  Age: 40 Year
  Sex: Male

DRUGS (5)
  1. LEVOTHYROXIN [Suspect]
     Indication: SECONDARY HYPOTHYROIDISM
  2. MORPHINE [Suspect]
     Indication: BLOOD GROWTH HORMONE ABNORMAL
     Route: 037
     Dates: start: 1995
  3. DULOXETINE [Suspect]
     Indication: PRODUCT USED FOR UNKNOWN INDICATION
     Dosage: INTRATHECAL
  4. DEPO-TESTOSTERONE [Suspect]
  5. SOMATROPIN [Suspect]

REACTIONS (5)
  - Growth hormone deficiency [None]
  - Adrenal insufficiency [None]
  - Secondary adrenocortical insufficiency [None]
  - Secondary hypogonadism [None]
  - Libido decreased [None]
